FAERS Safety Report 5510240-6 (Version None)
Quarter: 2007Q4

REPORT INFORMATION
  Report Type: 
  Country: None (occurrence: None)
  Receive Date: 20071106
  Receipt Date: 20071022
  Transmission Date: 20080405
  Serious: Yes (Other)
  Sender: FDA-Public Use
  Company Number: 430011N07JPN

PATIENT
  Age: 36 Year
  Sex: Female

DRUGS (12)
  1. NOVANTRONE [Suspect]
     Indication: ACUTE MYELOID LEUKAEMIA RECURRENT
     Dosage: INTRAVENOUS (NOT OTHERWISE SPECIFIED)
     Dates: start: 20061102, end: 20061108
  2. MYLOTARG [Suspect]
     Indication: ACUTE MYELOID LEUKAEMIA RECURRENT
     Dosage: SEE IMAGE
     Route: 042
     Dates: start: 20060825, end: 20060825
  3. MYLOTARG [Suspect]
     Indication: ACUTE MYELOID LEUKAEMIA RECURRENT
     Dosage: SEE IMAGE
     Route: 042
     Dates: start: 20060908, end: 20060908
  4. ENOCITABINE (ENOCITABINE) [Suspect]
     Indication: ACUTE MYELOID LEUKAEMIA RECURRENT
     Dosage: INTRAVENOUS (NOT OTHERWISE SPECIFIED)
     Dates: start: 20061102, end: 20061108
  5. ETOPOSIDE [Suspect]
     Indication: ACUTE MYELOID LEUKAEMIA RECURRENT
     Dosage: INTRAVENOUS (NOT OTHERWISE SPECIFIED)
     Route: 042
     Dates: start: 20061102, end: 20061108
  6. BACTRIM [Concomitant]
  7. FLUCONAZOLE [Concomitant]
  8. MELOXICAM [Concomitant]
  9. NIZATIDINE [Concomitant]
  10. RILMAZAFONE [Concomitant]
  11. POLYMYXIN B /00106601/ [Concomitant]
  12. FUROSEMIDE /00032601/ [Concomitant]

REACTIONS (13)
  - ANAEMIA [None]
  - CHOLECYSTITIS [None]
  - CHOLELITHIASIS [None]
  - HYPOALBUMINAEMIA [None]
  - HYPOKALAEMIA [None]
  - LIVER DISORDER [None]
  - NEUTROPHIL COUNT DECREASED [None]
  - OEDEMA [None]
  - OPPORTUNISTIC INFECTION [None]
  - PROTEIN URINE PRESENT [None]
  - STAPHYLOCOCCAL SEPSIS [None]
  - WEIGHT INCREASED [None]
  - WHITE BLOOD CELL COUNT DECREASED [None]
